FAERS Safety Report 22127332 (Version 1)
Quarter: 2023Q1

REPORT INFORMATION
  Report Type: Spontaneous
  Country: US (occurrence: US)
  Receive Date: 20230322
  Receipt Date: 20230322
  Transmission Date: 20230417
  Serious: No
  Sender: FDA-Public Use
  Company Number: US-ALLERGAN-2301743US

PATIENT
  Sex: Female

DRUGS (2)
  1. KYBELLA [Suspect]
     Active Substance: DEOXYCHOLIC ACID
     Indication: Product used for unknown indication
     Dosage: UNK UNK, SINGLE
     Dates: start: 20220328, end: 20220328
  2. KYBELLA [Suspect]
     Active Substance: DEOXYCHOLIC ACID
     Dosage: UNK, SINGLE
     Dates: start: 20220124, end: 20220124

REACTIONS (4)
  - Streptococcal infection [Unknown]
  - Sensation of foreign body [Unknown]
  - Skin texture abnormal [Unknown]
  - Rash [Unknown]

NARRATIVE: CASE EVENT DATE: 20221201
